FAERS Safety Report 5875204-1 (Version None)
Quarter: 2008Q3

REPORT INFORMATION
  Report Type: 
  Country: None (occurrence: None)
  Receive Date: 20080904
  Receipt Date: 20080826
  Transmission Date: 20090109
  Serious: Yes (Hospitalization)
  Sender: FDA-Public Use
  Company Number: 2008JP003898

PATIENT
  Age: 4 Year
  Sex: Female

DRUGS (2)
  1. PROGRAF [Suspect]
     Indication: LIVER TRANSPLANT
  2. STEROID FORMULATION UNKNOWN [Concomitant]

REACTIONS (1)
  - ERYTHEMA NODOSUM [None]
